FAERS Safety Report 4356697-8 (Version None)
Quarter: 2004Q2

REPORT INFORMATION
  Report Type: 
  Country: None (occurrence: None)
  Receive Date: 20040507
  Receipt Date: 20040420
  Transmission Date: 20050107
  Serious: Yes (Death)
  Sender: FDA-Public Use
  Company Number: USA040465408

PATIENT
  Age: 52 Year
  Sex: Male

DRUGS (1)
  1. PROZAC [Suspect]
     Dates: start: 20020101

REACTIONS (1)
  - COMPLETED SUICIDE [None]
